FAERS Safety Report 14638818 (Version 1)
Quarter: 2018Q1

REPORT INFORMATION
  Report Type: Spontaneous
  Country: US (occurrence: US)
  Receive Date: 20180315
  Receipt Date: 20180315
  Transmission Date: 20180509
  Serious: No
  Sender: FDA-Public Use
  Company Number: US-B.I. PHARMACEUTICALS,INC./RIDGEFIELD-2018-BI-013628

PATIENT
  Sex: Female

DRUGS (2)
  1. OFEV [Suspect]
     Active Substance: NINTEDANIB
     Indication: IDIOPATHIC PULMONARY FIBROSIS
     Route: 048
     Dates: start: 201703, end: 20180101
  2. OFEV [Suspect]
     Active Substance: NINTEDANIB
     Route: 048

REACTIONS (6)
  - Flatulence [Unknown]
  - Nausea [Unknown]
  - Headache [Unknown]
  - Smoke sensitivity [Unknown]
  - Perfume sensitivity [Unknown]
  - Abdominal pain [Unknown]

NARRATIVE: CASE EVENT DATE: 2017
